FAERS Safety Report 22789992 (Version 2)
Quarter: 2023Q4

REPORT INFORMATION
  Report Type: Spontaneous
  Country: US (occurrence: US)
  Receive Date: 20230804
  Receipt Date: 20231128
  Transmission Date: 20240109
  Serious: Yes (Hospitalization)
  Sender: FDA-Public Use
  Company Number: US-PFIZER INC-202300267679

PATIENT
  Age: 25 Year
  Sex: Male

DRUGS (1)
  1. OXBRYTA [Suspect]
     Active Substance: VOXELOTOR
     Dosage: 1500 MG, DAILY (500MG 3 TABLETS ONCE DAILY)
     Route: 048
     Dates: start: 202003

REACTIONS (1)
  - Sickle cell anaemia with crisis [Not Recovered/Not Resolved]
